FAERS Safety Report 13282229 (Version 1)
Quarter: 2017Q1

REPORT INFORMATION
  Report Type: Spontaneous
  Country: FR (occurrence: FR)
  Receive Date: 20170301
  Receipt Date: 20170301
  Transmission Date: 20170428
  Serious: Yes (Hospitalization, Other)
  Sender: FDA-Public Use
  Company Number: FR-GLAXOSMITHKLINE-FR2017GSK024386

PATIENT
  Age: 29 Year
  Sex: Female

DRUGS (10)
  1. SALBUTAMOL [Suspect]
     Active Substance: ALBUTEROL
     Indication: ASTHMA
     Dosage: EACH HOUR
     Route: 055
     Dates: start: 201310
  2. SALBUTAMOL [Suspect]
     Active Substance: ALBUTEROL
     Dosage: UNK
     Route: 042
  3. EPINEPHRINE. [Suspect]
     Active Substance: EPINEPHRINE
     Indication: HAEMODYNAMIC INSTABILITY
  4. CORTICOIDS [Concomitant]
     Active Substance: UNSPECIFIED INGREDIENT
     Indication: ASTHMA
  5. KETAMINE [Concomitant]
     Active Substance: KETAMINE
     Indication: ASTHMA
  6. NOREPINEPHRINE [Concomitant]
     Active Substance: NOREPINEPHRINE\NOREPINEPHRINE BITARTRATE
     Indication: CIRCULATORY COLLAPSE
  7. MAGNESIUM SULFATE. [Concomitant]
     Active Substance: MAGNESIUM SULFATE
     Indication: ASTHMA
  8. IPRATROPIUM BROMIDE. [Concomitant]
     Active Substance: IPRATROPIUM BROMIDE
     Indication: ASTHMA
  9. SEVOFLURANE. [Concomitant]
     Active Substance: SEVOFLURANE
  10. EPINEPHRINE. [Suspect]
     Active Substance: EPINEPHRINE
     Indication: ASTHMA
     Dosage: 1.3 MG/KG/MIN
     Route: 042
     Dates: start: 201310

REACTIONS (11)
  - Stress cardiomyopathy [Recovered/Resolved]
  - Left ventricular dysfunction [Recovered/Resolved]
  - Rhinovirus infection [Unknown]
  - Shock [Unknown]
  - Acute kidney injury [Unknown]
  - Hypokinesia [Unknown]
  - Acute hepatic failure [Unknown]
  - Multiple organ dysfunction syndrome [Unknown]
  - Troponin increased [Unknown]
  - Adenovirus infection [Unknown]
  - Cardiogenic shock [Recovered/Resolved]

NARRATIVE: CASE EVENT DATE: 201310
